FAERS Safety Report 6616314-0 (Version None)
Quarter: 2010Q1

REPORT INFORMATION
  Report Type: 
  Country: None (occurrence: None)
  Receive Date: 20100305
  Receipt Date: 20100222
  Transmission Date: 20100710
  Serious: Yes (Hospitalization)
  Sender: FDA-Public Use
  Company Number: US-ROCHE-688071

PATIENT
  Age: 46 Year

DRUGS (5)
  1. TRASTUZUMAB [Suspect]
     Dosage: REPORTING PERIOD: DOSES 1- 2, MOST RECENT DOSE ON 29 AUG 2008, ROUTE TAKEN FROM CLINICAL TRIAL.
     Route: 042
  2. BEVACIZUMAB [Suspect]
     Dosage: REPORTING PERIOD: DOSES 1- 2, MOST RECENT DOSE ON 29 AUG 2008, ROUTE TAKEN FROM CLINICAL TRIAL.
     Route: 042
  3. EPIRUBICIN [Suspect]
     Route: 042
  4. CYCLOPHOSPHAMIDE [Suspect]
     Route: 042
  5. DOCETAXEL [Suspect]
     Route: 042

REACTIONS (3)
  - DEHYDRATION [None]
  - DIARRHOEA [None]
  - INCISION SITE INFECTION [None]
